FAERS Safety Report 7708511-8 (Version None)
Quarter: 2011Q3

REPORT INFORMATION
  Report Type: 
  Country: None (occurrence: None)
  Receive Date: 20110824
  Receipt Date: 20110824
  Transmission Date: 20111222
  Serious: No
  Sender: FDA-Public Use
  Company Number: None

PATIENT
  Sex: Female
  Weight: 43.5453 kg

DRUGS (1)
  1. DOCETAXEL [Suspect]
     Indication: TONGUE NEOPLASM MALIGNANT STAGE UNSPECIFIED
     Dosage: 80MG ONCE IV INFUSION
     Route: 042
     Dates: start: 20110719

REACTIONS (3)
  - ERYTHEMA [None]
  - DYSPNOEA [None]
  - OXYGEN SATURATION DECREASED [None]
